APPROVED DRUG PRODUCT: BUSPAR
Active Ingredient: BUSPIRONE HYDROCHLORIDE
Strength: 10MG **Federal Register determination that product was not discontinued or withdrawn for safety or effectiveness reasons**
Dosage Form/Route: TABLET;ORAL
Application: N018731 | Product #002
Applicant: BRISTOL MYERS SQUIBB CO PHARMACEUTICAL RESEARCH INSTITUTE
Approved: Sep 29, 1986 | RLD: Yes | RS: No | Type: DISCN